FAERS Safety Report 6748664-1 (Version None)
Quarter: 2010Q2

REPORT INFORMATION
  Report Type: 
  Country: None (occurrence: None)
  Receive Date: 20100601
  Receipt Date: 20100524
  Transmission Date: 20101027
  Serious: Yes (Hospitalization, Other)
  Sender: FDA-Public Use
  Company Number: US-JNJFOC-20100509941

PATIENT
  Sex: Male
  Weight: 122.47 kg

DRUGS (3)
  1. DURAGESIC-100 [Suspect]
     Indication: NEUROPATHY PERIPHERAL
     Route: 062
  2. DURAGESIC-100 [Suspect]
     Route: 062
  3. NEXIUM [Concomitant]
     Indication: GASTRIC DISORDER
     Route: 048

REACTIONS (3)
  - AMNESIA [None]
  - INFECTION [None]
  - URINARY TRACT INFECTION [None]
